FAERS Safety Report 5689089-X (Version None)
Quarter: 2008Q1

REPORT INFORMATION
  Report Type: 
  Country: None (occurrence: None)
  Receive Date: 20080331
  Receipt Date: 20070611
  Transmission Date: 20080703
  Serious: Yes (Death, Other)
  Sender: FDA-Public Use
  Company Number: CA-ROCHE-502283

PATIENT
  Age: 48 Year
  Sex: Female
  Weight: 53 kg

DRUGS (4)
  1. XELODA [Suspect]
     Indication: DRUG USE FOR UNKNOWN INDICATION
     Route: 048
  2. ZOLEDRONIC ACID [Concomitant]
     Route: 042
  3. TRAZODONE HCL [Concomitant]
  4. AROMASIN [Concomitant]

REACTIONS (10)
  - ALANINE AMINOTRANSFERASE INCREASED [None]
  - ASPARTATE AMINOTRANSFERASE INCREASED [None]
  - BLOOD ALKALINE PHOSPHATASE INCREASED [None]
  - BLOOD BILIRUBIN INCREASED [None]
  - CHEST PAIN [None]
  - DEATH [None]
  - HEPATIC FAILURE [None]
  - HEPATITIS [None]
  - PAIN IN JAW [None]
  - PYREXIA [None]
